FAERS Safety Report 14871176 (Version 2)
Quarter: 2018Q2

REPORT INFORMATION
  Report Type: Spontaneous
  Country: US (occurrence: US)
  Receive Date: 20180509
  Receipt Date: 20180530
  Transmission Date: 20180711
  Serious: Yes (Hospitalization)
  Sender: FDA-Public Use
  Company Number: US-PFIZER INC-2017260415

PATIENT
  Age: 4 Year
  Sex: Female
  Weight: 13.2 kg

DRUGS (2)
  1. GENOTROPIN [Suspect]
     Active Substance: SOMATROPIN
     Dosage: UNK, (0.4ML INJECTION)
  2. GENOTROPIN [Suspect]
     Active Substance: SOMATROPIN
     Dosage: 0.4 MG, DAILY

REACTIONS (5)
  - Drug dose omission [Unknown]
  - Malaise [Unknown]
  - Dehydration [Unknown]
  - Device issue [Unknown]
  - Pneumonia [Unknown]

NARRATIVE: CASE EVENT DATE: 201711
